FAERS Safety Report 17871314 (Version 1)
Quarter: 2020Q2

REPORT INFORMATION
  Report Type: Report from Study
  Country: GB (occurrence: GB)
  Receive Date: 20200608
  Receipt Date: 20200608
  Transmission Date: 20200714
  Serious: Yes (Other)
  Sender: FDA-Public Use
  Company Number: NVSC2020GB158605

PATIENT
  Age: 83 Year
  Sex: Male

DRUGS (1)
  1. SANDOSTATIN LAR DEPOT [Suspect]
     Active Substance: OCTREOTIDE ACETATE
     Indication: NEUROENDOCRINE TUMOUR
     Dosage: 20 MG, QMO
     Route: 030

REACTIONS (10)
  - Sneezing [Unknown]
  - Urinary tract infection [Recovered/Resolved]
  - Flatulence [Unknown]
  - Macular degeneration [Unknown]
  - Seasonal allergy [Unknown]
  - Eye swelling [Unknown]
  - Dyspepsia [Unknown]
  - Abdominal distension [Unknown]
  - Upper-airway cough syndrome [Unknown]
  - Depression [Unknown]
